FAERS Safety Report 8393193-5 (Version None)
Quarter: 2012Q2

REPORT INFORMATION
  Report Type: 
  Country: None (occurrence: None)
  Receive Date: 20120529
  Receipt Date: 20120523
  Transmission Date: 20120825
  Serious: No
  Sender: FDA-Public Use
  Company Number: US-ABBOTT-12P-163-0938990-00

PATIENT
  Sex: Male
  Weight: 96.248 kg

DRUGS (1)
  1. ANDROGEL [Suspect]
     Indication: BLOOD TESTOSTERONE DECREASED
     Dosage: 4 PUMPS PER DAY
     Dates: start: 20120201

REACTIONS (3)
  - MUSCULOSKELETAL DISCOMFORT [None]
  - MOBILITY DECREASED [None]
  - WRONG TECHNIQUE IN DRUG USAGE PROCESS [None]
